FAERS Safety Report 5338336-2 (Version None)
Quarter: 2007Q2

REPORT INFORMATION
  Report Type: 
  Country: None (occurrence: None)
  Receive Date: 20070530
  Receipt Date: 20070516
  Transmission Date: 20071010
  Serious: Yes (Hospitalization)
  Sender: FDA-Public Use
  Company Number: BR-ELI_LILLY_AND_COMPANY-BR200705005757

PATIENT
  Age: 80 Year
  Sex: Female
  Weight: 60 kg

DRUGS (12)
  1. FORTEO [Suspect]
     Indication: OSTEOPOROSIS
     Dosage: 20 UG, UNKNOWN
     Route: 058
     Dates: start: 20051101
  2. OSCAL D [Concomitant]
     Indication: OSTEOPOROSIS
     Dosage: 500 MG, UNKNOWN
     Route: 065
  3. EVISTA [Concomitant]
     Indication: BREAST CANCER
     Dosage: 60 MG, UNKNOWN
     Route: 065
  4. MONOCORDIL [Concomitant]
     Indication: CARDIAC DISORDER
     Dosage: 20 MG, UNKNOWN
     Route: 065
  5. BUFFERIN [Concomitant]
     Indication: CARDIAC DISORDER
     Dosage: 81 MG, UNKNOWN
     Route: 065
  6. ANCORON [Concomitant]
     Indication: CARDIAC DISORDER
     Dosage: 200 MG, UNKNOWN
     Route: 065
  7. CALTREN [Concomitant]
     Indication: CARDIAC DISORDER
     Dosage: 20 MG, UNKNOWN
     Route: 065
  8. PRAVACHOL [Concomitant]
     Indication: CARDIAC DISORDER
     Dosage: 200 MG, UNKNOWN
     Route: 065
  9. MIFLASONA [Concomitant]
     Indication: RESPIRATORY FAILURE
     Dosage: 200 UG, UNKNOWN
     Route: 065
  10. BAMIFIX [Concomitant]
     Indication: RESPIRATORY FAILURE
     Dosage: 600 MG, UNKNOWN
     Route: 065
  11. SYNTHROID [Concomitant]
     Indication: THYROID DISORDER
     Dosage: 25 UG, UNKNOWN
     Route: 065
  12. SYNTHROID [Concomitant]
     Dosage: 50 UG, UNKNOWN
     Route: 065

REACTIONS (4)
  - FALL [None]
  - FEMUR FRACTURE [None]
  - HAEMATOMA [None]
  - HEAD INJURY [None]
